FAERS Safety Report 4932232-8 (Version None)
Quarter: 2006Q1

REPORT INFORMATION
  Report Type: 
  Country: None (occurrence: None)
  Receive Date: 20060228
  Receipt Date: 20060214
  Transmission Date: 20060701
  Serious: Yes (Other)
  Sender: FDA-Public Use
  Company Number: CERZ-11024

PATIENT
  Age: 45 Year
  Sex: Female
  Weight: 50 kg

DRUGS (3)
  1. CEREZYME [Suspect]
     Indication: GAUCHER'S DISEASE
     Dosage: 3000 UNITS IV
     Route: 042
     Dates: start: 20050101, end: 20051004
  2. TEGRETOL [Concomitant]
  3. BENADRYL [Concomitant]

REACTIONS (5)
  - ASTHENIA [None]
  - CHILLS [None]
  - HYPERTENSION [None]
  - INFUSION RELATED REACTION [None]
  - TACHYCARDIA [None]
